FAERS Safety Report 13783778 (Version 1)
Quarter: 2017Q3

REPORT INFORMATION
  Report Type: Report from Study
  Country: BR (occurrence: BR)
  Receive Date: 20170724
  Receipt Date: 20170724
  Transmission Date: 20171127
  Serious: Yes (Life-Threatening, Other)
  Sender: FDA-Public Use
  Company Number: PHHY2017BR108410

PATIENT
  Sex: Female
  Weight: 49.4 kg

DRUGS (1)
  1. ACLASTA [Suspect]
     Active Substance: ZOLEDRONIC ACID
     Indication: OSTEOPOROSIS
     Dosage: 1 DF, Q12MO
     Route: 042

REACTIONS (8)
  - Platelet count decreased [Unknown]
  - Gastric cancer [Unknown]
  - Abdominal pain upper [Unknown]
  - Hypoacusis [Unknown]
  - Spinal disorder [Unknown]
  - Movement disorder [Unknown]
  - Gait disturbance [Unknown]
  - Spinal fracture [Unknown]
